FAERS Safety Report 16658426 (Version 1)
Quarter: 2019Q3

REPORT INFORMATION
  Report Type: Spontaneous
  Country: GB (occurrence: GB)
  Receive Date: 20190801
  Receipt Date: 20190801
  Transmission Date: 20191004
  Serious: Yes (Other)
  Sender: FDA-Public Use
  Company Number: GB-MYLANLABS-2019M1072060

PATIENT
  Age: 42 Year
  Sex: Male
  Weight: 62 kg

DRUGS (5)
  1. SIRDUPLA [Suspect]
     Active Substance: FLUTICASONE PROPIONATE\SALMETEROL XINAFOATE
     Indication: PRODUCT USED FOR UNKNOWN INDICATION
     Dosage: 25MICROGRAMS/DOSE / 250MICROGRAMS/DOSE
     Dates: start: 20181018, end: 20190218
  2. MOMETASONE [Concomitant]
     Active Substance: MOMETASONE
     Dosage: SPRAYS, EACH NOSTRILS.
     Dates: start: 20180420
  3. SERETIDE [Concomitant]
     Active Substance: FLUTICASONE PROPIONATE\SALMETEROL XINAFOATE
     Dosage: 2 DOSAGE FORM, QD
     Dates: start: 20190218
  4. VENTOLIN [Concomitant]
     Active Substance: ALBUTEROL SULFATE
     Dosage: AS REQUIRED.
     Dates: start: 20180613
  5. FLUCLOXACILLIN [Concomitant]
     Active Substance: FLUCLOXACILLIN
     Dosage: 4 DOSAGE FORM, QD
     Dates: start: 20190114, end: 20190121

REACTIONS (2)
  - Hypersensitivity [Unknown]
  - Pruritus genital [Recovered/Resolved]
